APPROVED DRUG PRODUCT: GATIFLOXACIN
Active Ingredient: GATIFLOXACIN
Strength: 0.5%
Dosage Form/Route: SOLUTION/DROPS;OPHTHALMIC
Application: A204227 | Product #001 | TE Code: AT
Applicant: SANDOZ INC
Approved: Jul 11, 2016 | RLD: No | RS: No | Type: RX